FAERS Safety Report 11337377 (Version 1)
Quarter: 2015Q3

REPORT INFORMATION
  Report Type: Spontaneous
  Country: US (occurrence: US)
  Receive Date: 20150803
  Receipt Date: 20150803
  Transmission Date: 20151125
  Serious: No
  Sender: FDA-Public Use
  Company Number: US-ELI_LILLY_AND_COMPANY-US200803003440

PATIENT
  Age: 37 Year
  Sex: Female
  Weight: 61.22 kg

DRUGS (3)
  1. ZYPREXA [Suspect]
     Active Substance: OLANZAPINE
     Dosage: 5 MG, UNK
     Dates: start: 1999
  2. ZYPREXA [Suspect]
     Active Substance: OLANZAPINE
     Dosage: 20 MG, UNK
     Dates: start: 20080319
  3. ZYPREXA [Suspect]
     Active Substance: OLANZAPINE
     Dates: start: 20001230, end: 20070327

REACTIONS (5)
  - Obesity [Unknown]
  - Vision blurred [Unknown]
  - Polydipsia [Unknown]
  - Diabetes mellitus [Not Recovered/Not Resolved]
  - Hyperphagia [Unknown]

NARRATIVE: CASE EVENT DATE: 2005
